FAERS Safety Report 9135176 (Version 1)
Quarter: 2013Q1

REPORT INFORMATION
  Report Type: Spontaneous
  Country: FR (occurrence: FR)
  Receive Date: 20130304
  Receipt Date: 20130304
  Transmission Date: 20140127
  Serious: Yes (Life-Threatening)
  Sender: FDA-Public Use
  Company Number: FR-009507513-1303FRA000173

PATIENT
  Age: 45 Year
  Sex: Female

DRUGS (1)
  1. COSOPT [Suspect]

REACTIONS (1)
  - Cerebrovascular accident [Unknown]
